FAERS Safety Report 11789124 (Version 1)
Quarter: 2015Q4

REPORT INFORMATION
  Report Type: Spontaneous
  Country: IT (occurrence: IT)
  Receive Date: 20151201
  Receipt Date: 20151201
  Transmission Date: 20160305
  Serious: Yes (Hospitalization)
  Sender: FDA-Public Use
  Company Number: IT-AUROBINDO-AUR-APL-2015-10565

PATIENT
  Age: 61 Year
  Sex: Male

DRUGS (4)
  1. BISOPROLOL 2.5 MG [Suspect]
     Active Substance: BISOPROLOL
     Indication: PRODUCT USED FOR UNKNOWN INDICATION
     Dosage: 2.5 MG DOSAGE FORM X42
     Route: 048
     Dates: start: 20150907, end: 20150907
  2. DELTACORTENE [Suspect]
     Active Substance: PREDNISONE
     Indication: PRODUCT USED FOR UNKNOWN INDICATION
     Dosage: 10 DF TOTAL
     Route: 048
     Dates: start: 20150907, end: 20150907
  3. LANSOPRAZOLE. [Suspect]
     Active Substance: LANSOPRAZOLE
     Indication: PRODUCT USED FOR UNKNOWN INDICATION
     Route: 048
     Dates: start: 20150907, end: 20150907
  4. VALIUM [Suspect]
     Active Substance: DIAZEPAM
     Indication: PRODUCT USED FOR UNKNOWN INDICATION
     Dosage: 20 ML TOTAL
     Route: 048
     Dates: start: 20150907, end: 20150907

REACTIONS (4)
  - Drug abuse [Recovered/Resolved]
  - Sopor [Recovered/Resolved]
  - Self injurious behaviour [Recovered/Resolved]
  - Electrocardiogram ST segment abnormal [Recovered/Resolved]

NARRATIVE: CASE EVENT DATE: 20150907
